FAERS Safety Report 17077813 (Version 1)
Quarter: 2019Q4

REPORT INFORMATION
  Report Type: Report from Study
  Country: US (occurrence: US)
  Receive Date: 20191126
  Receipt Date: 20191126
  Transmission Date: 20200122
  Serious: Yes (Other)
  Sender: FDA-Public Use
  Company Number: NVSC2019US048556

PATIENT
  Age: 48 Year
  Sex: Male

DRUGS (4)
  1. GILENYA [Suspect]
     Active Substance: FINGOLIMOD HYDROCHLORIDE
     Indication: MULTIPLE SCLEROSIS
     Dosage: UNK, QD
     Route: 048
  2. PROTAN [Concomitant]
     Indication: GASTROOESOPHAGEAL REFLUX DISEASE
     Route: 065
  3. FLONASE [Concomitant]
     Active Substance: FLUTICASONE PROPIONATE
     Indication: HYPERSENSITIVITY
     Dosage: UNK
     Route: 065
     Dates: start: 20180731
  4. NASAL SALINE [Concomitant]
     Active Substance: SODIUM CHLORIDE
     Indication: HYPERSENSITIVITY
     Dosage: UNK, QD
     Route: 048
     Dates: start: 20180731

REACTIONS (2)
  - Multiple sclerosis relapse [Unknown]
  - Nausea [Recovered/Resolved]

NARRATIVE: CASE EVENT DATE: 20180731
